FAERS Safety Report 13821897 (Version 2)
Quarter: 2017Q3

REPORT INFORMATION
  Report Type: Spontaneous
  Country: US (occurrence: US)
  Receive Date: 20170801
  Receipt Date: 20170809
  Transmission Date: 20171127
  Serious: No
  Sender: FDA-Public Use
  Company Number: US-PFIZER INC-2016573664

PATIENT
  Age: 70 Year
  Sex: Male
  Weight: 79 kg

DRUGS (19)
  1. LYRICA [Suspect]
     Active Substance: PREGABALIN
     Dosage: 100 MG, 3X/DAY
     Route: 048
  2. JARDIANCE [Concomitant]
     Active Substance: EMPAGLIFLOZIN
     Dosage: 1/2 TAB DAILY
     Route: 048
  3. GLUCOPHAGE XR [Concomitant]
     Active Substance: METFORMIN HYDROCHLORIDE
     Dosage: 750 MG, TAKE 1 TABLET BY MOUTH 3 TIMES A DAY
     Route: 048
  4. MORPHINE SULFATE. [Concomitant]
     Active Substance: MORPHINE SULFATE
     Dosage: 30 MG, 3X/DAY
  5. GLIPIZIDE. [Concomitant]
     Active Substance: GLIPIZIDE
     Dosage: 5 MG, 3X/DAY
  6. ATIVAN [Concomitant]
     Active Substance: LORAZEPAM
     Dosage: 1 MG, TAKE 1 TABLET BY MOUTH AT BEDTIME AS NEEDED
     Route: 048
  7. LISINOPRIL. [Concomitant]
     Active Substance: LISINOPRIL
     Dosage: 20 MG, 2X/DAY
  8. ORAMORPH [Concomitant]
     Active Substance: MORPHINE SULFATE
     Dosage: 30 MG, 3X/DAY
     Route: 048
  9. ORAMORPH [Concomitant]
     Active Substance: MORPHINE SULFATE
     Dosage: 15 MG, 2X/DAY
     Route: 048
  10. GLUCOTROL [Concomitant]
     Active Substance: GLIPIZIDE
     Dosage: 5 MG, 2X/DAY (30 MINUTES BEFORE BREAKFAST AND DINNER)
     Route: 048
  11. JANUVIA [Concomitant]
     Active Substance: SITAGLIPTIN PHOSPHATE
     Dosage: 100 MG, 2X/DAY
     Route: 048
  12. PRINIVIL [Concomitant]
     Active Substance: LISINOPRIL
     Dosage: 20 MG, TAKE 1 TABLET BY MOUTH DAILY
     Route: 048
  13. ZESTRIL [Concomitant]
     Active Substance: LISINOPRIL
     Dosage: 20 MG, DAILY
     Route: 048
  14. ZANAFLEX [Concomitant]
     Active Substance: TIZANIDINE HYDROCHLORIDE
     Indication: MUSCLE SPASMS
     Dosage: 2 MG, TAKE 1 TABLET BY MOUTH 3 TIMES A DAY AS NEEDED
     Route: 048
  15. LYRICA [Suspect]
     Active Substance: PREGABALIN
     Dosage: UNK (DOWN TO TAKING 2 A DAY INSTEAD OF 3 PILL)
  16. MS CONTIN [Concomitant]
     Active Substance: MORPHINE SULFATE
     Dosage: 15 MG, TAKE 1 TABLET BY MOUTH 2 TIMES A DAY
     Route: 048
  17. MS CONTIN [Concomitant]
     Active Substance: MORPHINE SULFATE
     Dosage: 30 MG, TAKE 1 TABLET BY MOUTH 3 TIMES A DAY
     Route: 048
  18. JANUVIA [Concomitant]
     Active Substance: SITAGLIPTIN PHOSPHATE
     Dosage: 100 MG, DAILY
     Route: 048
  19. MORPHINE SULFATE. [Concomitant]
     Active Substance: MORPHINE SULFATE
     Dosage: 15 MG, 3X/DAY

REACTIONS (3)
  - Pain [Not Recovered/Not Resolved]
  - Intentional product use issue [Unknown]
  - Pain in extremity [Unknown]
